FAERS Safety Report 9210922 (Version 2)
Quarter: 2014Q1

REPORT INFORMATION
  Report Type: Spontaneous
  Country: US (occurrence: US)
  Receive Date: 20130404
  Receipt Date: 20140110
  Transmission Date: 20141002
  Serious: Yes (Hospitalization, Other)
  Sender: FDA-Public Use
  Company Number: US-BAYER-2013-040690

PATIENT
  Age: 22 Year
  Sex: Female
  Weight: 86.18 kg

DRUGS (10)
  1. OCELLA [Suspect]
  2. YASMIN [Suspect]
     Route: 048
  3. AUGMENTIN [Concomitant]
     Dosage: 875-125 MG EVERY 12 HOURS
     Route: 048
  4. BUSPAR [Concomitant]
     Dosage: 10 MG, TID
     Route: 048
  5. NASONEX [Concomitant]
     Dosage: 50 MCG, 2 SPRAYS EVERY DAY IN EACH NOSTRIL
  6. PAXIL [Concomitant]
     Dosage: 20 MG, QD
     Route: 048
  7. VALTREX [Concomitant]
     Dosage: 1000 MG, TAKE 2 TABLETS EVERY 12 HOURS
     Route: 048
  8. PHENERGAN [Concomitant]
  9. ZOFRAN [Concomitant]
  10. OMEPRAZOLE [Concomitant]

REACTIONS (5)
  - Gallbladder injury [None]
  - Biliary dyskinesia [None]
  - Injury [None]
  - Pain [None]
  - Pain [None]
